FAERS Safety Report 7505439-3 (Version None)
Quarter: 2011Q2

REPORT INFORMATION
  Report Type: 
  Country: None (occurrence: None)
  Receive Date: 20110526
  Receipt Date: 20110524
  Transmission Date: 20111010
  Serious: No
  Sender: FDA-Public Use
  Company Number: US-PFIZER INC-2011113205

PATIENT
  Sex: Female
  Weight: 53.968 kg

DRUGS (23)
  1. LYRICA [Suspect]
     Indication: SJOGREN'S SYNDROME
  2. LEVOCETIRIZINE [Concomitant]
     Indication: NEUROPATHY PERIPHERAL
  3. NAPROXEN [Concomitant]
     Indication: SJOGREN'S SYNDROME
  4. PLAQUENIL [Concomitant]
     Indication: NEUROPATHY PERIPHERAL
  5. NEXIUM [Concomitant]
     Indication: NEUROPATHY PERIPHERAL
  6. CLOTRIMAZOLE [Concomitant]
     Indication: SJOGREN'S SYNDROME
  7. PREDNISONE [Concomitant]
     Indication: ARTHRITIS
     Dosage: 5 MG DAILY
  8. PREDNISONE [Concomitant]
     Indication: SJOGREN'S SYNDROME
  9. LYRICA [Suspect]
     Indication: NEUROPATHY PERIPHERAL
  10. LYRICA [Suspect]
     Indication: ARTHRITIS
     Dosage: 75 MG DAILY
     Route: 048
     Dates: start: 20110523
  11. LYRICA [Suspect]
     Indication: PAIN
  12. PLAQUENIL [Concomitant]
     Indication: SJOGREN'S SYNDROME
  13. NEXIUM [Concomitant]
     Indication: SJOGREN'S SYNDROME
  14. NAPROXEN [Concomitant]
     Indication: NEUROPATHY PERIPHERAL
  15. PREDNISONE [Concomitant]
     Indication: NEUROPATHY PERIPHERAL
  16. CLOTRIMAZOLE [Concomitant]
     Indication: ARTHRITIS
     Dosage: 10 MG, 5X/DAY
  17. PLAQUENIL [Concomitant]
     Indication: ARTHRITIS
     Dosage: 200 MG, 2X/DAY
  18. LEVOCETIRIZINE [Concomitant]
     Indication: ARTHRITIS
     Dosage: 30 MG, 6X/DAY
  19. NAPROXEN [Concomitant]
     Indication: ARTHRITIS
     Dosage: 500 MG 2X/DAY AS NEEDED
  20. CLOTRIMAZOLE [Concomitant]
     Indication: NEUROPATHY PERIPHERAL
  21. NEXIUM [Concomitant]
     Indication: ARTHRITIS
     Dosage: 30 MG, 2X/DAY
  22. LEVOCETIRIZINE [Concomitant]
     Indication: SJOGREN'S SYNDROME
  23. LUMIGAN [Concomitant]
     Dosage: DAILY

REACTIONS (1)
  - DIZZINESS [None]
